FAERS Safety Report 19062323 (Version 1)
Quarter: 2021Q1

REPORT INFORMATION
  Report Type: Spontaneous
  Country: US (occurrence: US)
  Receive Date: 20210326
  Receipt Date: 20210326
  Transmission Date: 20210420
  Serious: Yes (Other)
  Sender: FDA-Public Use
  Company Number: US-ACORDA-ACO_168324_2021

PATIENT
  Sex: Female

DRUGS (11)
  1. AMPYRA [Suspect]
     Active Substance: DALFAMPRIDINE
     Indication: PRODUCT USED FOR UNKNOWN INDICATION
     Dosage: UNK UNK, QOD
     Route: 065
  2. CYCLOSPORINE. [Suspect]
     Active Substance: CYCLOSPORINE
     Indication: PRODUCT USED FOR UNKNOWN INDICATION
     Dosage: UNK
     Route: 065
  3. XYZAL [Concomitant]
     Active Substance: LEVOCETIRIZINE DIHYDROCHLORIDE
     Indication: HYPERSENSITIVITY
     Dosage: UNK
     Route: 065
  4. ADVAIR HFA [Concomitant]
     Active Substance: FLUTICASONE PROPIONATE\SALMETEROL XINAFOATE
     Indication: ASTHMA
     Dosage: UNK
     Route: 065
     Dates: start: 202004
  5. DULERA [Concomitant]
     Active Substance: FORMOTEROL FUMARATE DIHYDRATE\MOMETASONE FUROATE
     Indication: ASTHMA
     Dosage: UNK
     Route: 065
  6. OTHER THERAPEUTIC PRODUCTS [Concomitant]
     Active Substance: UNSPECIFIED INGREDIENT
     Indication: PRODUCT USED FOR UNKNOWN INDICATION
     Dosage: 2 DOSAGES
     Route: 065
     Dates: start: 202001
  7. AUBAGIO [Suspect]
     Active Substance: TERIFLUNOMIDE
     Dosage: 7 MILLIGRAM, QD
     Route: 048
  8. AUBAGIO [Suspect]
     Active Substance: TERIFLUNOMIDE
     Indication: MULTIPLE SCLEROSIS
     Dosage: 14 MILLIGRAM, QD
     Route: 048
     Dates: start: 20180316
  9. FLU VACCINE VII [Concomitant]
     Active Substance: INFLUENZA VIRUS VACCINE
     Indication: PRODUCT USED FOR UNKNOWN INDICATION
     Dosage: UNK
     Route: 065
     Dates: start: 201910
  10. DALFAMPRIDINE. [Suspect]
     Active Substance: DALFAMPRIDINE
     Indication: PRODUCT USED FOR UNKNOWN INDICATION
     Dosage: UNK
     Route: 065
  11. OTHER THERAPEUTIC PRODUCTS [Concomitant]
     Active Substance: UNSPECIFIED INGREDIENT
     Indication: PRODUCT USED FOR UNKNOWN INDICATION
     Dosage: UNK
     Route: 065
     Dates: start: 202003

REACTIONS (27)
  - Bladder dysfunction [Unknown]
  - Neck pain [Unknown]
  - Blood cholesterol increased [Not Recovered/Not Resolved]
  - Peripheral swelling [Not Recovered/Not Resolved]
  - Cataract [Recovered/Resolved]
  - Multiple sclerosis relapse [Unknown]
  - Arthritis [Recovered/Resolved]
  - Arthralgia [Unknown]
  - Renal impairment [Recovered/Resolved]
  - Osteoporosis [Not Recovered/Not Resolved]
  - Condition aggravated [Unknown]
  - Joint swelling [Unknown]
  - Multiple sclerosis [Unknown]
  - Decreased appetite [Not Recovered/Not Resolved]
  - Chapped lips [Not Recovered/Not Resolved]
  - Parosmia [Not Recovered/Not Resolved]
  - Vitamin D increased [Unknown]
  - Stomatitis [Not Recovered/Not Resolved]
  - Nausea [Unknown]
  - Chromaturia [Recovered/Resolved]
  - Taste disorder [Not Recovered/Not Resolved]
  - Pain [Unknown]
  - Musculoskeletal discomfort [Unknown]
  - Feeling abnormal [Recovered/Resolved]
  - Limb discomfort [Unknown]
  - Diarrhoea [Recovered/Resolved]
  - Weight decreased [Unknown]

NARRATIVE: CASE EVENT DATE: 2018
